FAERS Safety Report 24758827 (Version 1)
Quarter: 2024Q4

REPORT INFORMATION
  Report Type: Spontaneous
  Country: US (occurrence: US)
  Receive Date: 20241220
  Receipt Date: 20241220
  Transmission Date: 20250115
  Serious: No
  Sender: REVANCE THERAPEUTICS
  Company Number: US-REVANCE THERAPEUTICS INC.-US-REV-2024-000708

PATIENT

DRUGS (1)
  1. DAXIBOTULINUMTOXIN A-LANM [Suspect]
     Active Substance: DAXIBOTULINUMTOXIN A-LANM
     Indication: Skin wrinkling
     Dosage: DAO (4 UNITS EACH), MENTALIS (8 UNITS), PLATYSMAL BANDS (48 UNITS)
     Route: 065

REACTIONS (3)
  - Adverse event [Unknown]
  - Overdose [Unknown]
  - Off label use [Unknown]
